FAERS Safety Report 6434819-2 (Version None)
Quarter: 2009Q4

REPORT INFORMATION
  Report Type: 
  Country: None (occurrence: None)
  Receive Date: 20091110
  Receipt Date: 20091029
  Transmission Date: 20100525
  Serious: Yes (Hospitalization)
  Sender: FDA-Public Use
  Company Number: US-JNJFOC-20090908408

PATIENT
  Sex: Female
  Weight: 10.89 kg

DRUGS (4)
  1. TYLENOL (CAPLET) [Suspect]
  2. TYLENOL (CAPLET) [Suspect]
     Indication: PYREXIA
     Dosage: 60 MG EVERY 4-6 HOURS
  3. MOTRIN [Concomitant]
     Indication: PYREXIA
  4. DE-CHLOR HC [Concomitant]
     Indication: RESPIRATORY TRACT CONGESTION

REACTIONS (4)
  - PNEUMONIA [None]
  - RESPIRATORY ARREST [None]
  - TRANSMISSION OF AN INFECTIOUS AGENT VIA A MEDICINAL PRODUCT [None]
  - UNRESPONSIVE TO STIMULI [None]
